FAERS Safety Report 24225549 (Version 2)
Quarter: 2024Q4

REPORT INFORMATION
  Report Type: Spontaneous
  Country: US (occurrence: US)
  Receive Date: 20240820
  Receipt Date: 20241115
  Transmission Date: 20250114
  Serious: No
  Sender: Kenvue
  Company Number: US-JNJFOC-20240827728

PATIENT
  Age: 44 Year
  Sex: Male

DRUGS (1)
  1. ZYRTEC [Suspect]
     Active Substance: CETIRIZINE HYDROCHLORIDE
     Indication: Urticaria
     Dosage: FREQUENCY TEXT: ONCE OR TWICE A DAY
     Route: 048
     Dates: start: 20240803

REACTIONS (3)
  - Somnolence [Unknown]
  - Product use in unapproved indication [Unknown]
  - Overdose [Unknown]

NARRATIVE: CASE EVENT DATE: 20240801
